FAERS Safety Report 7011384 (Version 9)
Quarter: 2013Q4

REPORT INFORMATION
  Report Type: Spontaneous
  Country: US (occurrence: US)
  Receive Date: 20090604
  Receipt Date: 20131031
  Transmission Date: 20140711
  Serious: Yes (Other)
  Sender: FDA-Public Use
  Company Number: US-ASTRAZENECA-2008UW27974

PATIENT
  Age: 52 Year
  Sex: Female
  Weight: 44.9 kg

DRUGS (22)
  1. NEXIUM [Suspect]
     Indication: ULCER
     Route: 048
     Dates: start: 2001, end: 20131004
  2. NEXIUM [Suspect]
     Indication: ULCER
     Route: 048
     Dates: start: 20080608, end: 20081021
  3. NEXIUM [Suspect]
     Indication: ULCER
     Route: 048
  4. NEXIUM [Suspect]
     Indication: ULCER
     Route: 048
  5. PRILOSEC OTC [Suspect]
     Indication: ULCER
     Route: 048
     Dates: start: 20080608, end: 20081021
  6. PRILOSEC OTC [Suspect]
     Indication: ULCER
     Dosage: 10 PILLS DAILY
     Route: 048
     Dates: start: 201310
  7. OMEPRAZOLE [Suspect]
     Route: 048
     Dates: start: 20081117, end: 20081210
  8. OMEPRAZOLE [Suspect]
     Route: 048
     Dates: start: 20090414, end: 20100108
  9. PROTONIX [Concomitant]
     Dates: start: 20070525, end: 20070803
  10. PROTONIX [Concomitant]
     Dates: start: 20070904, end: 20071205
  11. ACIPHEX [Concomitant]
     Dates: start: 20070710, end: 20070803
  12. ESTRADIOL [Concomitant]
     Route: 048
     Dates: start: 20120210
  13. INDERAL [Concomitant]
     Indication: CARDIAC DISORDER
     Route: 048
     Dates: start: 20120130
  14. INDERAL [Concomitant]
     Indication: CARDIAC DISORDER
     Route: 048
     Dates: start: 1997
  15. NICORETTE [Concomitant]
     Dosage: 2 MG GUM CHEW ONE PIECE GUM Q 2 HRS
     Dates: start: 20120111
  16. VITAMINS [Concomitant]
     Indication: VITAMIN SUPPLEMENTATION
     Dosage: DAILY
     Route: 048
  17. XANAX [Concomitant]
     Indication: CARDIAC DISORDER
     Route: 048
  18. ESTRAZOLE [Concomitant]
     Indication: HORMONE REPLACEMENT THERAPY
     Route: 048
     Dates: start: 2004
  19. BENTYL [Concomitant]
     Indication: MUSCLE SPASMS
     Route: 048
  20. PROMETHAZINE [Concomitant]
     Indication: NAUSEA
     Dosage: 25 MG PRN QID
     Route: 048
  21. ENTERIC COATED ASA [Concomitant]
     Dosage: DAILY
     Route: 048
  22. NITROGLYCERIN [Concomitant]
     Indication: ANGINA PECTORIS
     Dosage: 4 MG 3 PRN
     Route: 048
     Dates: start: 1997

REACTIONS (58)
  - Foot fracture [Unknown]
  - Cerebrovascular accident [Unknown]
  - Foot fracture [Unknown]
  - Transient ischaemic attack [Unknown]
  - Nuclear magnetic resonance imaging abnormal [Unknown]
  - Stress [Unknown]
  - Chest pain [Unknown]
  - Gastric haemorrhage [Unknown]
  - Adverse event [Unknown]
  - Pain [Unknown]
  - Osteoporosis [Unknown]
  - Anxiety [Unknown]
  - Decreased appetite [Unknown]
  - Musculoskeletal chest pain [Unknown]
  - Micturition urgency [Unknown]
  - Vitamin D deficiency [Unknown]
  - Genital herpes [Unknown]
  - Raynaud^s phenomenon [Unknown]
  - Dry eye [Unknown]
  - Rotator cuff syndrome [Unknown]
  - Asthma [Unknown]
  - Sinus tachycardia [Unknown]
  - Disturbance in attention [Unknown]
  - Slow speech [Unknown]
  - Self esteem decreased [Unknown]
  - Palpitations [Unknown]
  - Dysuria [Unknown]
  - Eye swelling [Unknown]
  - Asthenia [Unknown]
  - Dyspnoea [Unknown]
  - Pain in extremity [Unknown]
  - Pain in extremity [Unknown]
  - Hypertension [Unknown]
  - Road traffic accident [Unknown]
  - Cardiac disorder [Unknown]
  - Photophobia [Unknown]
  - Dyskinesia [Unknown]
  - Migraine [Unknown]
  - Sleep disorder [Unknown]
  - Pyrexia [Unknown]
  - Abdominal pain [Unknown]
  - Insomnia [Unknown]
  - Headache [Unknown]
  - Malaise [Unknown]
  - Depression [Unknown]
  - Nausea [Unknown]
  - Diarrhoea [Unknown]
  - Ulcer [Unknown]
  - Tongue biting [Unknown]
  - Urinary tract infection [Unknown]
  - Weight decreased [Unknown]
  - Uterine polyp [Unknown]
  - Ovarian cyst [Unknown]
  - Vascular pain [Unknown]
  - Intentional drug misuse [Unknown]
  - Off label use [Unknown]
  - Drug dose omission [Unknown]
  - Drug ineffective [Unknown]
